FAERS Safety Report 24987642 (Version 5)
Quarter: 2025Q4

REPORT INFORMATION
  Report Type: Report from Study
  Country: US (occurrence: US)
  Receive Date: 20250219
  Receipt Date: 20251122
  Transmission Date: 20260118
  Serious: Yes (Hospitalization, Other)
  Sender: NOVARTIS
  Company Number: US-002147023-NVSC2025US027724

PATIENT
  Age: 29 Year
  Sex: Female

DRUGS (1)
  1. COSENTYX [Suspect]
     Active Substance: SECUKINUMAB
     Indication: Psoriasis
     Dosage: 300 MG, QMO
     Route: 058
     Dates: start: 20250127

REACTIONS (3)
  - Pharyngitis streptococcal [Unknown]
  - Pneumonia [Unknown]
  - Product dose omission issue [Unknown]

NARRATIVE: CASE EVENT DATE: 20250217
